FAERS Safety Report 6159106-1 (Version None)
Quarter: 2009Q2

REPORT INFORMATION
  Report Type: 
  Country: None (occurrence: None)
  Receive Date: 20090407
  Receipt Date: 20090324
  Transmission Date: 20091009
  Serious: Yes (Death)
  Sender: FDA-Public Use
  Company Number: THYM-1000940

PATIENT
  Age: 68 Year
  Sex: Female
  Weight: 55 kg

DRUGS (29)
  1. THYMOGLOBULIN [Suspect]
     Indication: APLASTIC ANAEMIA
     Dosage: 3.75 MG/KG, QD, INTRAVENOUS
     Route: 042
     Dates: start: 20090101, end: 20090123
  2. GRANULOCYTE COLONY STIMULATING FACTOR (GRANULOCYTE COLONY STIMULATING [Concomitant]
  3. CYCLOSPORINE [Concomitant]
  4. STEROID (STEROID (UNSPECIFIED)) [Concomitant]
  5. MAGNESIUM OXIDE (MAGNESIUM OXIDE) [Concomitant]
  6. VALSARTAN [Concomitant]
  7. METENOLONE ACETATE (METENOLONE ACETATE) [Concomitant]
  8. SULFAMETHOXAZOL MED TRIMETOPRIM (SULFAMETHOXAZOLE, TRIMETHOPRIM) [Concomitant]
  9. PREDNISOLONE [Concomitant]
  10. POVIDONE IODINE [Concomitant]
  11. KETOPROFEN [Concomitant]
  12. INSULIN (INSULIN HUMAN) [Concomitant]
  13. DEFEROXAMINE MESILATE (DEFEROXAMINE MESILATE) [Concomitant]
  14. CEFEPIME HYDROCHLORIDE [Concomitant]
  15. HYDROCORTISONE SODIUM SUCCINATE [Concomitant]
  16. MICAFUNGIN SODIUM (MICAFUNGIN SODIUM) [Concomitant]
  17. MEROPENEM TRIHYDRATE (MEROPENEM TRIHYDRATE) [Concomitant]
  18. VORICONAZOLE (VORICONAZOLE) [Concomitant]
  19. URSODESOXYCHOLIC ACID (URSODESOXYCHOLIC ACID) [Concomitant]
  20. TEICOLPLANIN (TEICOLPLANIN) [Concomitant]
  21. FLURBIPROFEN AXETIL (FLURBIPROFEN AXETIL) [Concomitant]
  22. IMMUNOGLOBULIN (IMMUNOGLOBULIN HUMAN NORMAL) [Concomitant]
  23. FUROSEMIDE [Concomitant]
  24. ACYCLOVIR [Concomitant]
  25. CALCIUM POLYSTYRENE SULFONATE (CALCIUM POLYSTYRENE SULFONATE) [Concomitant]
  26. DICLOFENAC SODIUM [Concomitant]
  27. DEXCHLORPHENIRAMINE MALEATE [Concomitant]
  28. LEVOTHYROXINE SODIUM [Concomitant]
  29. SODIUM RABEPRAZOLE (SODIUM RABEPRAZOLE) [Concomitant]

REACTIONS (11)
  - ALANINE AMINOTRANSFERASE INCREASED [None]
  - ASPARTATE AMINOTRANSFERASE INCREASED [None]
  - BLOOD ALKALINE PHOSPHATASE INCREASED [None]
  - BLOOD BILIRUBIN INCREASED [None]
  - CYTOMEGALOVIRUS INFECTION [None]
  - DISSEMINATED INTRAVASCULAR COAGULATION [None]
  - DRUG INEFFECTIVE [None]
  - GASTROINTESTINAL HAEMORRHAGE [None]
  - LIVER DISORDER [None]
  - MULTI-ORGAN FAILURE [None]
  - RENAL FAILURE [None]
